FAERS Safety Report 11406764 (Version 2)
Quarter: 2015Q3

REPORT INFORMATION
  Report Type: Report from Study
  Country: US (occurrence: US)
  Receive Date: 20150821
  Receipt Date: 20150903
  Transmission Date: 20151125
  Serious: Yes (Death)
  Sender: FDA-Public Use
  Company Number: US-ASTELLAS-2015US022272

PATIENT
  Age: 68 Year
  Sex: Male

DRUGS (6)
  1. BENADRYL [Concomitant]
     Active Substance: DIPHENHYDRAMINE HYDROCHLORIDE
     Indication: PRODUCT USED FOR UNKNOWN INDICATION
     Route: 042
  2. AVASTIN [Suspect]
     Active Substance: BEVACIZUMAB
     Dosage: 820 MG, ONCE IN 2 WEEKS
     Route: 042
  3. MEGACE [Concomitant]
     Active Substance: MEGESTROL ACETATE
     Indication: PRODUCT USED FOR UNKNOWN INDICATION
     Dosage: UNK UNK, UNKNOWN FREQ.
     Route: 065
  4. ERLOTINIB [Suspect]
     Active Substance: ERLOTINIB
     Indication: RENAL CANCER
     Dosage: 150 MG, ONCE A DAY
     Route: 065
     Dates: start: 200507
  5. AVASTIN [Suspect]
     Active Substance: BEVACIZUMAB
     Indication: RENAL CANCER
     Dosage: 800 MG, ONCE IN 2 WEEKS
     Route: 042
     Dates: start: 200507
  6. TYLENOL [Concomitant]
     Active Substance: ACETAMINOPHEN
     Indication: PRODUCT USED FOR UNKNOWN INDICATION
     Route: 048

REACTIONS (17)
  - Abdominal tenderness [Unknown]
  - Pain of skin [Unknown]
  - Abdominal pain [Unknown]
  - Epistaxis [Unknown]
  - Death [Fatal]
  - Tenderness [Unknown]
  - Decreased appetite [Unknown]
  - Stomatitis [Unknown]
  - Pollakiuria [Unknown]
  - Pleural effusion [Unknown]
  - Weight decreased [Unknown]
  - Dyspepsia [Unknown]
  - Nausea [Unknown]
  - Fatigue [Unknown]
  - Necrosis [Unknown]
  - Dyspnoea [Unknown]
  - Epigastric discomfort [Unknown]

NARRATIVE: CASE EVENT DATE: 200606
